FAERS Safety Report 8348993-4 (Version None)
Quarter: 2012Q2

REPORT INFORMATION
  Report Type: 
  Country: None (occurrence: None)
  Receive Date: 20120508
  Receipt Date: 20120427
  Transmission Date: 20120825
  Serious: Yes (Other)
  Sender: FDA-Public Use
  Company Number: 2012MA005574

PATIENT
  Age: 33 Year
  Sex: Male

DRUGS (3)
  1. METHADONE HCL [Concomitant]
  2. GABAPENTIN [Suspect]
     Dosage: 300 MG;QD;PO
     Route: 048
  3. HEROIN [Concomitant]

REACTIONS (2)
  - SELF-MEDICATION [None]
  - DRUG ABUSE [None]
